FAERS Safety Report 10278350 (Version 6)
Quarter: 2014Q3

REPORT INFORMATION
  Report Type: Spontaneous
  Country: CA (occurrence: CA)
  Receive Date: 20140704
  Receipt Date: 20140922
  Transmission Date: 20150326
  Serious: Yes (Other)
  Sender: FDA-Public Use
  Company Number: CA-BEH-2013038332

PATIENT
  Age: 74 Year
  Sex: Female
  Weight: 60 kg

DRUGS (5)
  1. LEVOPHED [Concomitant]
     Active Substance: NOREPINEPHRINE BITARTRATE
  2. AZITHROMYCIN [Concomitant]
     Active Substance: AZITHROMYCIN ANHYDROUS
  3. CORTICOSTEROIDS [Concomitant]
     Active Substance: CORTICOSTEROID NOS
  4. PRIVIGEN [Suspect]
     Active Substance: HUMAN IMMUNOGLOBULIN G
     Indication: SEPTIC SHOCK
     Dosage: 36 ML/H FOR 15 MIN, 72 ML/H FOR 15 MIN, 108 ML/H FOR 30 MIN, 144 ML/H FOR 30 MIN, 216 ML/H TO END
     Route: 042
     Dates: start: 20130727, end: 20130727
  5. K [Concomitant]

REACTIONS (1)
  - Haemolysis [Unknown]

NARRATIVE: CASE EVENT DATE: 20130730
